FAERS Safety Report 25575567 (Version 5)
Quarter: 2025Q3

REPORT INFORMATION
  Report Type: Spontaneous
  Country: EU (occurrence: EU)
  Receive Date: 20250718
  Receipt Date: 20250926
  Transmission Date: 20251021
  Serious: Yes (Hospitalization, Disabling, Other)
  Sender: ORGANON
  Company Number: EU-ORGANON-O2507PRT001505

PATIENT
  Age: 81 Year
  Sex: Male

DRUGS (16)
  1. TRAZODONE HYDROCHLORIDE [Suspect]
     Active Substance: TRAZODONE HYDROCHLORIDE
     Indication: Product used for unknown indication
     Dosage: 150 MILLIGRAM(S), IN 1 DAY (QD)
     Route: 065
  2. TRAZODONE HYDROCHLORIDE [Suspect]
     Active Substance: TRAZODONE HYDROCHLORIDE
     Dosage: 100 MILLIGRAM(S), IN 1 DAY (QD)
     Route: 065
  3. MONTELUKAST SODIUM [Suspect]
     Active Substance: MONTELUKAST SODIUM
     Indication: Product used for unknown indication
     Dosage: (10 MILLIGRAM(S), IN 1 DAY)
     Route: 065
  4. SIMVASTATIN [Suspect]
     Active Substance: SIMVASTATIN
     Indication: Product used for unknown indication
     Dosage: (20 MILLIGRAM(S), IN 1 DAY)
     Route: 065
  5. ESOMEPRAZOLE [Suspect]
     Active Substance: ESOMEPRAZOLE
     Indication: Gastrooesophageal reflux disease
     Dosage: 40.0 MILLIGRAM(S) (40 MILLIGRAM(S), 1 IN 1 DAY)
     Route: 065
  6. FOLIC ACID [Suspect]
     Active Substance: FOLIC ACID
     Indication: Product used for unknown indication
     Dosage: (5 MILLIGRAM(S), IN 1 DAY)
     Route: 065
  7. LACTULOSE [Suspect]
     Active Substance: LACTULOSE
     Indication: Product used for unknown indication
     Dosage: 1 DOSAGE FORM (IN 1 DAY)
     Route: 065
  8. LEVOTHYROXINE [Suspect]
     Active Substance: LEVOTHYROXINE
     Indication: Hypothyroidism
     Dosage: 0.1 MILLIGRAM(S) (0.1 MILLIGRAM(S), 1 IN 1 DAY)
     Route: 065
  9. METAMIZOLE [Suspect]
     Active Substance: METAMIZOLE
     Indication: Pain
     Dosage: 1150 MILLIGRAM(S) (575 MILLIGRAM(S), 2 IN 1 DAY)
     Route: 065
  10. METAMIZOLE [Suspect]
     Active Substance: METAMIZOLE
     Dosage: 1150 MG EVERY 1 DAY
     Route: 065
  11. ACETAMINOPHEN\TRAMADOL [Suspect]
     Active Substance: ACETAMINOPHEN\TRAMADOL
     Indication: Product used for unknown indication
     Dosage: 3.0 DOSAGE FORM (3 DOSAGE FORM, 1 IN 1 DAY)
     Route: 065
  12. RAMIPRIL [Suspect]
     Active Substance: RAMIPRIL
     Indication: Product used for unknown indication
     Dosage: (10 MILLIGRAM(S), IN 1 DAY)
     Route: 065
  13. TOPIRAMATE [Suspect]
     Active Substance: TOPIRAMATE
     Indication: Obesity
     Dosage: 200.0 MILLIGRAM(S) (200 MILLIGRAM(S), 1 IN 1 DAY)
     Route: 048
  14. TOPIRAMATE [Suspect]
     Active Substance: TOPIRAMATE
     Dosage: 175.0 MILLIGRAM(S) (200 MILLIGRAM(S), 1 IN 1 DAY)
     Route: 048
  15. TOPIRAMATE [Suspect]
     Active Substance: TOPIRAMATE
     Dosage: 250.0 MILLIGRAM(S) (200 MILLIGRAM(S), 1 IN 1 DAY)
     Route: 048
  16. VENLAFAXINE [Suspect]
     Active Substance: VENLAFAXINE HYDROCHLORIDE
     Indication: Depression
     Dosage: (75 MILLIGRAM(S), IN 1 DAY)
     Route: 048

REACTIONS (20)
  - Spinal fracture [Recovered/Resolved]
  - Renal failure [Recovered/Resolved]
  - Gait inability [Recovered/Resolved]
  - Fall [Recovered/Resolved]
  - Pain [Recovered/Resolved]
  - Apathy [Recovered/Resolved]
  - Nausea [Recovered/Resolved]
  - Vomiting [Recovered/Resolved]
  - Diarrhoea [Recovered/Resolved]
  - Hypotension [Recovered/Resolved]
  - Mutism [Recovered/Resolved]
  - Abnormal loss of weight [Recovered/Resolved]
  - Decreased appetite [Recovered/Resolved]
  - Mobility decreased [Recovering/Resolving]
  - Hypersomnia [Recovered/Resolved]
  - Sarcopenia [Recovered/Resolved]
  - Cachexia [Recovered/Resolved]
  - Acute kidney injury [Recovered/Resolved]
  - Product use issue [Unknown]
  - Off label use [Unknown]
